FAERS Safety Report 6189968-3 (Version None)
Quarter: 2009Q2

REPORT INFORMATION
  Report Type: 
  Country: None (occurrence: None)
  Receive Date: 20090514
  Receipt Date: 20090506
  Transmission Date: 20091009
  Serious: Yes (Other)
  Sender: FDA-Public Use
  Company Number: PHHY2009DE17476

PATIENT
  Age: 85 Year
  Sex: Male

DRUGS (1)
  1. ZOMETA [Suspect]
     Indication: METASTASES TO BONE
     Dosage: 4 MG
     Route: 042
     Dates: start: 20061101, end: 20080601

REACTIONS (4)
  - BONE DISORDER [None]
  - JAW OPERATION [None]
  - MEDICAL DEVICE COMPLICATION [None]
  - OSTEONECROSIS [None]
